FAERS Safety Report 8784779 (Version 3)
Quarter: 2013Q1

REPORT INFORMATION
  Report Type: Spontaneous
  Country: CA (occurrence: None)
  Receive Date: 20120828
  Receipt Date: 20130130
  Transmission Date: 20140127
  Serious: Yes (Other)
  Sender: FDA-Public Use
  Company Number: 2012SA060083

PATIENT
  Age: 42 Year
  Sex: Female

DRUGS (1)
  1. PAMPRIN MULTISYMPTOM MENSTRUAL PAIN RELIEF [Suspect]
     Indication: MENSTRUAL DISORDER
     Dosage: DOSAGE FORM
     Route: 048
     Dates: start: 20120807, end: 20120807

REACTIONS (5)
  - Drug hypersensitivity [None]
  - Loss of consciousness [None]
  - Hypersomnia [None]
  - Lethargy [None]
  - Asthenia [None]
